FAERS Safety Report 11986796 (Version 1)
Quarter: 2016Q1

REPORT INFORMATION
  Report Type: Spontaneous
  Country: US (occurrence: US)
  Receive Date: 20160202
  Receipt Date: 20160202
  Transmission Date: 20160526
  Serious: Yes (Hospitalization, Other)
  Sender: FDA-Public Use
  Company Number: US-UCBSA-2014019356

PATIENT
  Age: 83 Year
  Sex: Female

DRUGS (8)
  1. KEPPRA [Suspect]
     Active Substance: LEVETIRACETAM
     Indication: CONVULSION PROPHYLAXIS
     Dosage: UNKNOWN DOSE
     Dates: start: 2013, end: 201305
  2. KEPPRA [Suspect]
     Active Substance: LEVETIRACETAM
     Dosage: GRADUALLY INCREASED TO AN UNKOWN DOSE
     Dates: start: 201305, end: 201305
  3. CLONIDINE. [Concomitant]
     Active Substance: CLONIDINE
     Indication: CONVULSION PROPHYLAXIS
     Dosage: 0.1 MG, AS NEEDED (PRN)
     Route: 048
  4. FOLBIC [Concomitant]
     Active Substance: CYANOCOBALAMIN\FOLIC ACID\PYRIDOXINE
     Indication: PRODUCT USED FOR UNKNOWN INDICATION
     Dosage: 1 TAB, DAILY
     Route: 048
  5. LOSARTAN. [Concomitant]
     Active Substance: LOSARTAN
     Indication: HYPERTENSION
     Dosage: 100 MG, DAILY
     Route: 048
  6. MIRTAZAPINE. [Concomitant]
     Active Substance: MIRTAZAPINE
     Indication: PRODUCT USED FOR UNKNOWN INDICATION
     Dosage: 15 MG, DAILY HS
     Route: 048
  7. DILANTIN [Concomitant]
     Active Substance: PHENYTOIN
     Indication: CONVULSION PROPHYLAXIS
     Dosage: 150 MG, 2X/DAY (BID)
     Route: 048
     Dates: start: 2013
  8. DONEPEZIL. [Concomitant]
     Active Substance: DONEPEZIL
     Indication: PRODUCT USED FOR UNKNOWN INDICATION
     Dosage: 10 MG, ONCE DAILY (QD) 1 TAB HS
     Route: 048

REACTIONS (5)
  - Hallucination [Recovered/Resolved]
  - Seizure [Recovered/Resolved]
  - Unevaluable event [Recovering/Resolving]
  - Amnesia [Not Recovered/Not Resolved]
  - Aphasia [Not Recovered/Not Resolved]

NARRATIVE: CASE EVENT DATE: 201305
